FAERS Safety Report 18473618 (Version 1)
Quarter: 2020Q4

REPORT INFORMATION
  Report Type: Spontaneous
  Country: US (occurrence: US)
  Receive Date: 20201106
  Receipt Date: 20201106
  Transmission Date: 20210114
  Serious: Yes (Other)
  Sender: FDA-Public Use
  Company Number: US-SUN PHARMACEUTICAL INDUSTRIES LTD-2020R1-266678

PATIENT
  Age: 18 Year
  Sex: Male

DRUGS (6)
  1. DOXORUBICIN [Suspect]
     Active Substance: DOXORUBICIN
     Indication: CHEMOTHERAPY
     Dosage: UNK (SINGLE DOSE )
     Route: 065
  2. ETOPOSIDE. [Suspect]
     Active Substance: ETOPOSIDE
     Indication: CHEMOTHERAPY
     Dosage: UNK (SINGLE DOSE )
     Route: 065
  3. VINCRISTINE [Suspect]
     Active Substance: VINCRISTINE
     Indication: CHEMOTHERAPY
     Dosage: UNK (SINGLE DOSE )
     Route: 065
  4. PREDNISONE. [Suspect]
     Active Substance: PREDNISONE
     Indication: CHEMOTHERAPY
     Dosage: UNK (SINGLE DOSE )
     Route: 065
  5. CYCLOPHOSPHAMIDE. [Suspect]
     Active Substance: CYCLOPHOSPHAMIDE
     Indication: CHEMOTHERAPY
     Dosage: UNK (SINGLE DOSE )
     Route: 065
  6. RITUXIMAB. [Suspect]
     Active Substance: RITUXIMAB
     Indication: CHEMOTHERAPY
     Dosage: UNK (SINGLE DOSE )
     Route: 065

REACTIONS (10)
  - Acute kidney injury [Recovered/Resolved]
  - Superior vena cava syndrome [Recovered/Resolved]
  - Haematoma [Recovering/Resolving]
  - Agitation [Recovered/Resolved]
  - Systolic dysfunction [Recovering/Resolving]
  - Posterior reversible encephalopathy syndrome [Recovered/Resolved]
  - Febrile neutropenia [Recovering/Resolving]
  - Therapeutic product effect incomplete [Unknown]
  - Escherichia sepsis [Recovering/Resolving]
  - Generalised oedema [Recovering/Resolving]
